FAERS Safety Report 9892362 (Version 1)
Quarter: 2014Q1

REPORT INFORMATION
  Report Type: Spontaneous
  Country: HU (occurrence: HU)
  Receive Date: 20140212
  Receipt Date: 20140212
  Transmission Date: 20141002
  Serious: Yes (Other)
  Sender: FDA-Public Use
  Company Number: HU-WATSON-2014-02257

PATIENT
  Age: 70 Year
  Sex: Female

DRUGS (3)
  1. BOPACATIN [Suspect]
     Indication: OVARIAN CANCER
     Dosage: 499 MG, TOTAL
     Route: 041
     Dates: start: 20140120, end: 20140120
  2. ACCUZIDE [Concomitant]
     Indication: HYPERTENSION
     Dosage: 1 DF, DAILY
     Route: 048
  3. AVASTIN                            /01555201/ [Concomitant]
     Indication: OVARIAN CANCER
     Dosage: 488 MG, TOTAL
     Route: 041
     Dates: start: 20140120, end: 20140120

REACTIONS (3)
  - Loss of consciousness [Recovering/Resolving]
  - Vomiting [Recovering/Resolving]
  - Malaise [Recovering/Resolving]
